FAERS Safety Report 5473341-7 (Version None)
Quarter: 2007Q4

REPORT INFORMATION
  Report Type: 
  Country: None (occurrence: None)
  Receive Date: 20071001
  Receipt Date: 20070920
  Transmission Date: 20080405
  Serious: Yes (Other)
  Sender: FDA-Public Use
  Company Number: DE-JNJFOC-20070903842

PATIENT
  Age: 71 Year
  Sex: Male

DRUGS (3)
  1. IMODIUM AKUT KAPSEIN [Suspect]
  2. IMODIUM AKUT KAPSEIN [Suspect]
     Indication: DIARRHOEA
  3. UNSPECIFIED HYPERTENSION MEDICATION [Concomitant]
     Indication: HYPERTENSION

REACTIONS (2)
  - BLOOD PRESSURE DECREASED [None]
  - DIZZINESS POSTURAL [None]
